FAERS Safety Report 10970707 (Version 2)
Quarter: 2015Q2

REPORT INFORMATION
  Report Type: Spontaneous
  Country: BR (occurrence: BR)
  Receive Date: 20150331
  Receipt Date: 20150401
  Transmission Date: 20150821
  Serious: Yes (Other)
  Sender: FDA-Public Use
  Company Number: BR-PFIZER INC-2015073445

PATIENT
  Age: 53 Year
  Sex: Female
  Weight: 87 kg

DRUGS (7)
  1. ZOLPIDEM [Concomitant]
     Active Substance: ZOLPIDEM\ZOLPIDEM TARTRATE
     Indication: INSOMNIA
     Dosage: 5 MG (0.5 TABLET OF STRENGTH 10 MG), DAILY
     Dates: start: 2013
  2. PRISTIQ EXTENDED RELEASE [Suspect]
     Active Substance: DESVENLAFAXINE SUCCINATE
     Indication: BURNOUT SYNDROME
     Dosage: 100 MG, DAILY
     Route: 048
     Dates: start: 201308
  3. PRISTIQ EXTENDED RELEASE [Suspect]
     Active Substance: DESVENLAFAXINE SUCCINATE
     Dosage: 50 MG, WITH 36 HOURS OF INTERVAL
     Route: 048
     Dates: start: 20150120, end: 2015
  4. PRISTIQ EXTENDED RELEASE [Suspect]
     Active Substance: DESVENLAFAXINE SUCCINATE
     Dosage: 50 MG, DAILY
     Route: 048
     Dates: start: 201408
  5. PRISTIQ EXTENDED RELEASE [Suspect]
     Active Substance: DESVENLAFAXINE SUCCINATE
     Dosage: 50 MG, WITH 48 HOURS OF INTERVAL
     Route: 048
     Dates: start: 2015, end: 20150220
  6. SUSTRATE [Concomitant]
     Active Substance: PROPATYL NITRATE
     Indication: ANGINA PECTORIS
     Dosage: 5 MG, DAILY
     Dates: start: 2012
  7. PRISTIQ EXTENDED RELEASE [Suspect]
     Active Substance: DESVENLAFAXINE SUCCINATE
     Indication: DEPRESSION
     Dosage: 50 MG, 1X/DAY
     Route: 048
     Dates: start: 201304, end: 2013

REACTIONS (14)
  - Ear discomfort [Recovered/Resolved]
  - Diarrhoea [Recovered/Resolved]
  - Eye movement disorder [Recovered/Resolved]
  - Tachycardia [Not Recovered/Not Resolved]
  - Paraesthesia [Not Recovered/Not Resolved]
  - Vomiting [Recovered/Resolved]
  - Nausea [Recovered/Resolved]
  - Ocular discomfort [Unknown]
  - Abnormal sensation in eye [Not Recovered/Not Resolved]
  - Head discomfort [Recovered/Resolved]
  - Headache [Unknown]
  - Drug withdrawal syndrome [Unknown]
  - Product use issue [Unknown]
  - Malaise [Recovered/Resolved]

NARRATIVE: CASE EVENT DATE: 201304
